FAERS Safety Report 4860021-1 (Version None)
Quarter: 2005Q4

REPORT INFORMATION
  Report Type: 
  Country: None (occurrence: None)
  Receive Date: 20051219
  Receipt Date: 20051208
  Transmission Date: 20060501
  Serious: Yes (Death)
  Sender: FDA-Public Use
  Company Number: US-JNJFOC-20051202423

PATIENT
  Sex: Female

DRUGS (19)
  1. INFLIXIMAB [Suspect]
     Indication: RHEUMATOID ARTHRITIS
     Route: 042
  2. NAPROXEN [Concomitant]
  3. INDERAL [Concomitant]
  4. FOSAMAX [Concomitant]
  5. MULTI-VITAMIN [Concomitant]
  6. MULTI-VITAMIN [Concomitant]
  7. MULTI-VITAMIN [Concomitant]
  8. MULTI-VITAMIN [Concomitant]
  9. MULTI-VITAMIN [Concomitant]
  10. MULTI-VITAMIN [Concomitant]
  11. MULTI-VITAMIN [Concomitant]
  12. MULTI-VITAMIN [Concomitant]
  13. CALCIUM+D [Concomitant]
  14. CALCIUM+D [Concomitant]
  15. MAXZIDE [Concomitant]
  16. MAXZIDE [Concomitant]
     Dosage: 75/50 DAILY
  17. PREDNISONE TAB [Concomitant]
  18. ARAVA [Concomitant]
  19. TYLENOL [Concomitant]
     Dosage: 500 MG, 2 IN 1 DAY, AS NEEDED

REACTIONS (1)
  - BRAIN NEOPLASM MALIGNANT [None]
